FAERS Safety Report 24840781 (Version 1)
Quarter: 2025Q1

REPORT INFORMATION
  Report Type: Spontaneous
  Country: IN (occurrence: IN)
  Receive Date: 20250114
  Receipt Date: 20250114
  Transmission Date: 20250408
  Serious: Yes (Hospitalization)
  Sender: NOVARTIS
  Company Number: IN-002147023-NVSC2025IN003979

PATIENT
  Age: 9 Year
  Sex: Male

DRUGS (1)
  1. CYCLOSPORINE [Suspect]
     Active Substance: CYCLOSPORINE
     Indication: Odontogenic cyst
     Route: 065

REACTIONS (5)
  - Odontogenic cyst [Unknown]
  - Swelling face [Unknown]
  - Discharge [Unknown]
  - Pain [Unknown]
  - Product use in unapproved indication [Unknown]
